FAERS Safety Report 5565012-3 (Version None)
Quarter: 2007Q4

REPORT INFORMATION
  Report Type: 
  Country: None (occurrence: None)
  Receive Date: 20071212
  Receipt Date: 20071130
  Transmission Date: 20080405
  Serious: Yes (Other)
  Sender: FDA-Public Use
  Company Number: 2007BI024571

PATIENT
  Age: 39 Year
  Sex: Male
  Weight: 103.4201 kg

DRUGS (1)
  1. NATALIZUMAB [Suspect]
     Indication: MULTIPLE SCLEROSIS
     Dosage: 300 MG;QM;IV
     Route: 042
     Dates: start: 20071019

REACTIONS (3)
  - ANXIETY [None]
  - CONVULSION [None]
  - FEELING ABNORMAL [None]
